FAERS Safety Report 5989591-7 (Version None)
Quarter: 2008Q4

REPORT INFORMATION
  Report Type: 
  Country: None (occurrence: None)
  Receive Date: 20081208
  Receipt Date: 20081124
  Transmission Date: 20090506
  Serious: Yes (Death)
  Sender: FDA-Public Use
  Company Number: A-CH2008-22834

PATIENT
  Age: 65 Year
  Sex: Male
  Weight: 70 kg

DRUGS (3)
  1. TRACLEER [Suspect]
     Indication: DRUG USE FOR UNKNOWN INDICATION
     Dosage: 125 MG, BID, ORAL
     Route: 048
  2. ILOPROST [Concomitant]
  3. SILDENAFIL TABLET [Concomitant]

REACTIONS (2)
  - MULTIPLE INJURIES [None]
  - ROAD TRAFFIC ACCIDENT [None]
